FAERS Safety Report 10045897 (Version 1)
Quarter: 2014Q1

REPORT INFORMATION
  Report Type: Spontaneous
  Country: AU (occurrence: AU)
  Receive Date: 20140329
  Receipt Date: 20140329
  Transmission Date: 20141002
  Serious: Yes (Other)
  Sender: FDA-Public Use
  Company Number: AU-ABBVIE-14K-008-1218088-00

PATIENT
  Age: 36 Year
  Sex: Female

DRUGS (3)
  1. SODIUM VALPROATE [Suspect]
     Indication: AFFECTIVE DISORDER
     Dosage: ONCE
     Route: 048
     Dates: end: 20130918
  2. CLOZARIL [Suspect]
     Indication: SCHIZOPHRENIA
     Dosage: ONCE
     Route: 048
     Dates: start: 20030915, end: 20130825
  3. CLOZARIL [Suspect]
     Route: 048
     Dates: start: 20130904

REACTIONS (5)
  - Antipsychotic drug level decreased [Unknown]
  - Drug resistance [Unknown]
  - Anticonvulsant drug level decreased [Unknown]
  - Treatment noncompliance [Unknown]
  - Neutropenia [Unknown]
